FAERS Safety Report 12545646 (Version 2)
Quarter: 2016Q3

REPORT INFORMATION
  Report Type: Spontaneous
  Country: DE (occurrence: DE)
  Receive Date: 20160711
  Receipt Date: 20160719
  Transmission Date: 20161109
  Serious: Yes (Hospitalization, Other)
  Sender: FDA-Public Use
  Company Number: DE-TEVA-674885GER

PATIENT
  Age: 59 Year
  Sex: Male

DRUGS (7)
  1. MANNITOL. [Suspect]
     Active Substance: MANNITOL
     Dosage: 20 % ONCE DAILY FOR THREE DAYS FROM ONSET
  2. ETOPOSIDE. [Suspect]
     Active Substance: ETOPOSIDE
     Indication: NASAL SINUS CANCER
     Dosage: KOF; 100%; Q29; Q57
  3. DEXAMETHASONE. [Suspect]
     Active Substance: DEXAMETHASONE
     Indication: AGITATION
     Dosage: 12 MILLIGRAM DAILY; FOUR MILLIGRAM THREE TIMES DAILY FROM ONSET
  4. CISPLATIN. [Suspect]
     Active Substance: CISPLATIN
     Indication: NASAL SINUS CANCER
     Dosage: KOF; 100%; Q29; Q57
  5. DEXAMETHASONE. [Suspect]
     Active Substance: DEXAMETHASONE
     Indication: DISORIENTATION
  6. DEXAMETHASONE. [Suspect]
     Active Substance: DEXAMETHASONE
     Indication: ATAXIA
  7. DEXAMETHASONE. [Suspect]
     Active Substance: DEXAMETHASONE
     Indication: INCONTINENCE

REACTIONS (7)
  - Ataxia [Recovering/Resolving]
  - Disorientation [Unknown]
  - Cytomegalovirus infection [Recovered/Resolved]
  - Thrombocytopenia [Unknown]
  - Incontinence [Recovering/Resolving]
  - Agitation [Unknown]
  - Drug ineffective [Unknown]

NARRATIVE: CASE EVENT DATE: 2014
